FAERS Safety Report 10934049 (Version 2)
Quarter: 2015Q3

REPORT INFORMATION
  Report Type: Spontaneous
  Country: NZ (occurrence: NZ)
  Receive Date: 20150320
  Receipt Date: 20150923
  Transmission Date: 20151125
  Serious: Yes (Other)
  Sender: FDA-Public Use
  Company Number: NZ-CIPLA LTD.-2015NZ01828

PATIENT

DRUGS (1)
  1. ALENDRONATE [Suspect]
     Active Substance: ALENDRONATE SODIUM
     Indication: RENAL FAILURE
     Dosage: 70 MG, ONCE WEEKLY

REACTIONS (7)
  - Hypophosphatasia [Recovered/Resolved]
  - Renal failure [Recovered/Resolved]
  - Osteomalacia [Recovered/Resolved]
  - Multiple fractures [Recovered/Resolved]
  - Bone pain [Recovered/Resolved]
  - Bone density decreased [Recovered/Resolved]
  - Skeletal injury [Recovered/Resolved]
